FAERS Safety Report 9333009 (Version 1)
Quarter: 2013Q2

REPORT INFORMATION
  Report Type: Spontaneous
  Country: DE (occurrence: DE)
  Receive Date: 20130606
  Receipt Date: 20130606
  Transmission Date: 20140414
  Serious: Yes (Other)
  Sender: FDA-Public Use
  Company Number: DE-PFIZER INC-2013169259

PATIENT
  Age: 63 Year
  Sex: Male

DRUGS (3)
  1. LYRICA [Suspect]
     Dosage: 75 MG, UNK
     Dates: start: 2011
  2. LYRICA [Suspect]
     Dosage: 150 MG, UNK
  3. LYRICA [Suspect]
     Dosage: 150 MG, 2X/DAY
     Dates: start: 201302

REACTIONS (2)
  - Renal disorder [Unknown]
  - Liver disorder [Unknown]
